FAERS Safety Report 4644113-8 (Version None)
Quarter: 2005Q2

REPORT INFORMATION
  Report Type: 
  Country: None (occurrence: None)
  Receive Date: 20050425
  Receipt Date: 20050307
  Transmission Date: 20051028
  Serious: Yes (Hospitalization)
  Sender: FDA-Public Use
  Company Number: US-GLAXOSMITHKLINE-A0548510B

PATIENT
  Age: 64 Year
  Sex: Female
  Weight: 62 kg

DRUGS (7)
  1. LANOXIN [Suspect]
     Indication: TACHYCARDIA
     Dosage: .25MG TWICE PER DAY
     Route: 048
  2. REMIFEMIN [Concomitant]
     Indication: HOT FLUSH
     Route: 048
     Dates: start: 20050115, end: 20050205
  3. TENORMIN [Concomitant]
     Indication: TACHYCARDIA
     Route: 048
  4. NABUMETONE [Concomitant]
     Indication: ARTHRITIS
     Route: 048
  5. PROZAC [Concomitant]
     Route: 048
  6. TRICOR [Concomitant]
  7. ACIPHEX [Concomitant]

REACTIONS (12)
  - ATRIOVENTRICULAR BLOCK FIRST DEGREE [None]
  - BACK PAIN [None]
  - BRADYCARDIA [None]
  - CARDIAC MURMUR [None]
  - CHEST PAIN [None]
  - DIZZINESS [None]
  - DRUG INTERACTION [None]
  - ELECTROCARDIOGRAM ST SEGMENT ABNORMAL [None]
  - FATIGUE [None]
  - NAUSEA [None]
  - TACHYCARDIA [None]
  - THERAPEUTIC AGENT TOXICITY [None]
